FAERS Safety Report 4353940-6 (Version None)
Quarter: 2004Q2

REPORT INFORMATION
  Report Type: 
  Country: None (occurrence: None)
  Receive Date: 20040506
  Receipt Date: 20040203
  Transmission Date: 20050107
  Serious: No
  Sender: FDA-Public Use
  Company Number: US-GLAXOSMITHKLINE-A0496308A

PATIENT
  Age: 70 Year
  Sex: Female

DRUGS (4)
  1. AVANDAMET [Suspect]
     Dosage: 1TAB TWICE PER DAY
     Route: 048
  2. ADVAIR DISKUS 100/50 [Concomitant]
  3. ASPIRIN [Concomitant]
  4. SYNTHROID [Concomitant]

REACTIONS (3)
  - CONSTIPATION [None]
  - FLATULENCE [None]
  - NAUSEA [None]
